FAERS Safety Report 4296777-9 (Version None)
Quarter: 2004Q1

REPORT INFORMATION
  Report Type: 
  Country: None (occurrence: None)
  Receive Date: 20040126
  Receipt Date: 20030905
  Transmission Date: 20041129
  Serious: No
  Sender: FDA-Public Use
  Company Number: USA030946383

PATIENT
  Age: 12 Year
  Sex: Female
  Weight: 12.2471 kg

DRUGS (6)
  1. STRATTERA [Suspect]
     Indication: OPPOSITIONAL DEFIANT DISORDER
     Dosage: 36 MG/DAY
     Dates: start: 20030701
  2. GUANFACINE HCL [Concomitant]
  3. IMPRAMINE HCL [Concomitant]
  4. ZYRTEC [Concomitant]
  5. RHINOCORT [Concomitant]
  6. ADVAIR DISKUS 100/50 [Concomitant]

REACTIONS (3)
  - ABNORMAL BEHAVIOUR [None]
  - DRUG INEFFECTIVE [None]
  - PSYCHOMOTOR HYPERACTIVITY [None]
